FAERS Safety Report 16123625 (Version 1)
Quarter: 2019Q1

REPORT INFORMATION
  Report Type: Spontaneous
  Country: IT (occurrence: IT)
  Receive Date: 20190327
  Receipt Date: 20190327
  Transmission Date: 20190418
  Serious: Yes (Hospitalization, Other)
  Sender: FDA-Public Use
  Company Number: IT-MYLANLABS-2019M1026633

PATIENT
  Age: 82 Year
  Sex: Male

DRUGS (2)
  1. CIPROFLOXACIN. [Suspect]
     Active Substance: CIPROFLOXACIN
     Indication: PRODUCT USED FOR UNKNOWN INDICATION
     Dosage: 1000 MILLIGRAM, QD
     Route: 048
     Dates: start: 20080425, end: 20080430
  2. TICLOPIDINA                        /00543201/ [Concomitant]

REACTIONS (3)
  - Rash papular [Unknown]
  - Petechiae [Unknown]
  - Purpura [Unknown]

NARRATIVE: CASE EVENT DATE: 20080430
